FAERS Safety Report 15488104 (Version 1)
Quarter: 2018Q4

REPORT INFORMATION
  Report Type: Spontaneous
  Country: US (occurrence: US)
  Receive Date: 20181003
  Receipt Date: 20181003
  Transmission Date: 20190205
  Serious: Yes (Hospitalization)
  Sender: FDA-Public Use
  Company Number: None

PATIENT
  Age: 66 Year
  Sex: Male
  Weight: 139.25 kg

DRUGS (1)
  1. DAPTOMYCIN. [Suspect]
     Active Substance: DAPTOMYCIN
     Indication: INFECTION
     Route: 048
     Dates: start: 20180608, end: 20180702

REACTIONS (6)
  - Incorrect product administration duration [None]
  - Toxicity to various agents [None]
  - Lung infiltration [None]
  - Alveolitis allergic [None]
  - Computerised tomogram thorax abnormal [None]
  - Acute respiratory failure [None]

NARRATIVE: CASE EVENT DATE: 20180702
